FAERS Safety Report 5698764-2 (Version None)
Quarter: 2008Q2

REPORT INFORMATION
  Report Type: 
  Country: None (occurrence: None)
  Receive Date: 20080403
  Receipt Date: 20080324
  Transmission Date: 20081010
  Serious: Yes (Hospitalization)
  Sender: FDA-Public Use
  Company Number: 2008-01049

PATIENT
  Age: 63 Year
  Sex: Female

DRUGS (18)
  1. VELCADE [Suspect]
     Indication: MULTIPLE MYELOMA
     Dosage: 1.7 MG, INTRAVENOUS
     Route: 042
     Dates: start: 20070320, end: 20070413
  2. DECADRON [Suspect]
     Indication: MULTIPLE MYELOMA
     Dosage: 20 MG, ORAL; 10 MG, ORAL
     Route: 048
     Dates: start: 20070320, end: 20070331
  3. DECADRON [Suspect]
     Indication: MULTIPLE MYELOMA
     Dosage: 20 MG, ORAL; 10 MG, ORAL
     Route: 048
     Dates: start: 20070410, end: 20070414
  4. NABOAL - SLOW RELEASE (DICLOFENAC SODIUM) [Concomitant]
  5. PREDNISOLONE [Concomitant]
  6. ALLOPURINOL [Concomitant]
  7. MUCOSTA (REBAMIPIDE) [Concomitant]
  8. ALENDRONATE SODIUM [Concomitant]
  9. PURSENNID (SENNA LEAF) [Concomitant]
  10. OMEPRAL (OMEPRAZOLE) [Concomitant]
  11. CYTOTEC [Concomitant]
  12. LENDORM [Concomitant]
  13. LEPETAN (BUPRENORPHINE HYDROCHLORIDE) [Concomitant]
  14. LECICARBON (SODIUM BICARBONATE, LECITHIN, SODIUM PHOSPHATE MONOBASIC ( [Concomitant]
  15. MAGNESIUM OXIDE (MAGNESIUM OXIDE) [Concomitant]
  16. SULFAMETHOXAZOLE AND TRIMETHOPRIM [Concomitant]
  17. LAXOBERON (SODIUM PICOSULFATE) [Concomitant]
  18. ITRACONAZOLE [Concomitant]

REACTIONS (21)
  - ABDOMINAL DISTENSION [None]
  - ALANINE AMINOTRANSFERASE INCREASED [None]
  - ANAEMIA [None]
  - BACK PAIN [None]
  - BACTERIAL INFECTION [None]
  - BLOOD ALBUMIN DECREASED [None]
  - BLOOD CALCIUM DECREASED [None]
  - BLOOD LACTATE DEHYDROGENASE INCREASED [None]
  - BLOOD POTASSIUM INCREASED [None]
  - BLOOD SODIUM DECREASED [None]
  - BLOOD UREA INCREASED [None]
  - C-REACTIVE PROTEIN INCREASED [None]
  - CONSTIPATION [None]
  - HERPES ZOSTER [None]
  - LARGE INTESTINAL ULCER [None]
  - LYMPHOCYTE COUNT DECREASED [None]
  - MELAENA [None]
  - PLATELET COUNT DECREASED [None]
  - PROTEIN TOTAL DECREASED [None]
  - PYREXIA [None]
  - WHITE BLOOD CELL COUNT DECREASED [None]
